FAERS Safety Report 9886861 (Version 2)
Quarter: 2014Q1

REPORT INFORMATION
  Report Type: Report from Study
  Country: US (occurrence: US)
  Receive Date: 20140210
  Receipt Date: 20140210
  Transmission Date: 20141002
  Serious: Yes (Hospitalization)
  Sender: FDA-Public Use
  Company Number: US-ABBVIE-13P-163-1089258-00

PATIENT
  Age: 59 Year
  Sex: Male
  Weight: 90.8 kg

DRUGS (3)
  1. HUMIRA [Suspect]
     Indication: PSORIASIS
     Route: 058
     Dates: start: 20130412, end: 201305
  2. HUMIRA [Suspect]
     Indication: PSORIATIC ARTHROPATHY
  3. LISINOPRIL [Concomitant]
     Indication: HYPERTENSION

REACTIONS (4)
  - Mobility decreased [Recovering/Resolving]
  - Vasculitis [Recovered/Resolved]
  - Oedema peripheral [Recovered/Resolved]
  - Pain in extremity [Not Recovered/Not Resolved]
